FAERS Safety Report 12768193 (Version 6)
Quarter: 2017Q2

REPORT INFORMATION
  Report Type: Report from Study
  Country: CA (occurrence: CA)
  Receive Date: 20160921
  Receipt Date: 20170619
  Transmission Date: 20170830
  Serious: Yes (Hospitalization, Other)
  Sender: FDA-Public Use
  Company Number: CA-REGENERON PHARMACEUTICALS, INC.-2016-21721

PATIENT

DRUGS (4)
  1. EYLEA [Suspect]
     Active Substance: AFLIBERCEPT
     Dosage: 50 ?L, LEFT EYE
     Dates: start: 20160614
  2. EYLEA [Suspect]
     Active Substance: AFLIBERCEPT
     Dosage: 50 ?L, RIGHT EYE
     Route: 031
     Dates: start: 20170606, end: 20170606
  3. EYLEA [Suspect]
     Active Substance: AFLIBERCEPT
     Dosage: 50 ?L, LEFT EYE
     Route: 031
     Dates: start: 20170606, end: 20170606
  4. EYLEA [Suspect]
     Active Substance: AFLIBERCEPT
     Indication: NEOVASCULAR AGE-RELATED MACULAR DEGENERATION
     Dosage: 50 ?L, RIGHT EYE (STUDY EYE)
     Dates: start: 20160614

REACTIONS (3)
  - Abdominal pain upper [Unknown]
  - Abdominal abscess [Recovering/Resolving]
  - Renal disorder [Recovering/Resolving]

NARRATIVE: CASE EVENT DATE: 20160906
